FAERS Safety Report 10100959 (Version 2)
Quarter: 2014Q2

REPORT INFORMATION
  Report Type: Report from Study
  Country: AU (occurrence: AU)
  Receive Date: 20140424
  Receipt Date: 20140424
  Transmission Date: 20141212
  Serious: Yes (Other)
  Sender: FDA-Public Use
  Company Number: AU-ACCORD-023270

PATIENT
  Age: 77 Year
  Sex: Male

DRUGS (1)
  1. GEMCITABINE/GEMCITABINE HYDROCHLORIDE [Suspect]
     Indication: NON-SMALL CELL LUNG CANCER METASTATIC
     Dosage: GEMCITABINE 1G/M2 DAY 1,8,15 Q28D; 17 DAYS.

REACTIONS (1)
  - Pneumocystis jirovecii pneumonia [Unknown]
